FAERS Safety Report 7941713-4 (Version None)
Quarter: 2011Q4

REPORT INFORMATION
  Report Type: 
  Country: None (occurrence: None)
  Receive Date: 20111128
  Receipt Date: 20111128
  Transmission Date: 20120403
  Serious: Yes (Other)
  Sender: FDA-Public Use
  Company Number: None

PATIENT
  Age: 57 Year
  Sex: Female
  Weight: 91.625 kg

DRUGS (1)
  1. NEOSPORIN [Suspect]
     Indication: EXCORIATION
     Dosage: SMALL
     Route: 003
     Dates: start: 20111124, end: 20111124

REACTIONS (5)
  - APPLICATION SITE PAIN [None]
  - APPLICATION SITE INFLAMMATION [None]
  - INFLUENZA LIKE ILLNESS [None]
  - SOMNOLENCE [None]
  - APPLICATION SITE SWELLING [None]
